FAERS Safety Report 5475566-3 (Version None)
Quarter: 2007Q4

REPORT INFORMATION
  Report Type: 
  Country: None (occurrence: None)
  Receive Date: 20071001
  Receipt Date: 20070921
  Transmission Date: 20080405
  Serious: Yes (Hospitalization)
  Sender: FDA-Public Use
  Company Number: US020671

PATIENT
  Age: 38 Year
  Sex: Female
  Weight: 53.978 kg

DRUGS (5)
  1. PROVIGIL [Suspect]
     Indication: NARCOLEPSY
     Dosage: 200 MG BID ORAL
     Route: 048
     Dates: start: 20050901, end: 20060201
  2. PROVIGIL [Suspect]
     Indication: NARCOLEPSY
     Dosage: 200 MG IN AM AND 200MG/300 MG IN PM ORAL
     Route: 048
     Dates: start: 20061001, end: 20070710
  3. PROVIGIL [Suspect]
     Indication: NARCOLEPSY
     Dosage: 300 MG BID ORAL
     Route: 048
     Dates: start: 20070719
  4. XYREM [Suspect]
     Dosage: 2.25 G TWICE A DAY IN EVENING HOURS
  5. XYREM [Suspect]
     Dosage: 2.25 G TWICE A DAY IN EVENING HOURS
     Dates: start: 20070719

REACTIONS (13)
  - ASTHENIA [None]
  - BLOOD MAGNESIUM DECREASED [None]
  - BLOOD POTASSIUM DECREASED [None]
  - CATAPLEXY [None]
  - CHEST DISCOMFORT [None]
  - CONVULSION [None]
  - DRUG EFFECT DECREASED [None]
  - DRUG EXPOSURE BEFORE PREGNANCY [None]
  - FALL [None]
  - HEART RATE DECREASED [None]
  - LOSS OF CONSCIOUSNESS [None]
  - PREGNANCY [None]
  - SYNCOPE [None]
